FAERS Safety Report 16298979 (Version 9)
Quarter: 2019Q3

REPORT INFORMATION
  Report Type: Spontaneous
  Country: CA (occurrence: CA)
  Receive Date: 20190510
  Receipt Date: 20190923
  Transmission Date: 20191004
  Serious: Yes (Hospitalization, Other)
  Sender: FDA-Public Use
  Company Number: CA-ROCHE-2315073

PATIENT
  Age: 56 Year
  Sex: Female

DRUGS (15)
  1. XOLAIR [Suspect]
     Active Substance: OMALIZUMAB
     Route: 058
     Dates: start: 20190423
  2. SYMBICORT [Concomitant]
     Active Substance: BUDESONIDE\FORMOTEROL FUMARATE DIHYDRATE
     Indication: ASTHMA
     Route: 055
  3. PREDNISONE. [Concomitant]
     Active Substance: PREDNISONE
     Indication: PRODUCT USED FOR UNKNOWN INDICATION
     Dosage: UNK UNK, PRN
     Route: 048
  4. XOLAIR [Suspect]
     Active Substance: OMALIZUMAB
     Route: 058
     Dates: start: 20180913
  5. XOLAIR [Suspect]
     Active Substance: OMALIZUMAB
     Route: 058
     Dates: start: 20181017
  6. SPIRIVA [Concomitant]
     Active Substance: TIOTROPIUM BROMIDE MONOHYDRATE
     Indication: ASTHMA
     Route: 055
  7. SALBUTAMOL [Concomitant]
     Active Substance: ALBUTEROL
     Indication: ASTHMA
     Dosage: PRN
     Route: 065
  8. ATROVENT [Concomitant]
     Active Substance: IPRATROPIUM BROMIDE
     Indication: PRODUCT USED FOR UNKNOWN INDICATION
     Dosage: UNK
     Route: 065
  9. XOLAIR [Suspect]
     Active Substance: OMALIZUMAB
     Route: 058
     Dates: start: 20190611
  10. VENTOLIN [Concomitant]
     Active Substance: ALBUTEROL SULFATE
     Indication: ASTHMA
     Dosage: UNK
     Route: 065
  11. SINGULAIR [Concomitant]
     Active Substance: MONTELUKAST SODIUM
     Indication: PRODUCT USED FOR UNKNOWN INDICATION
     Route: 065
  12. ADVAIR HFA [Concomitant]
     Active Substance: FLUTICASONE PROPIONATE\SALMETEROL XINAFOATE
     Indication: PRODUCT USED FOR UNKNOWN INDICATION
     Route: 055
  13. XOLAIR [Suspect]
     Active Substance: OMALIZUMAB
     Indication: ASTHMA
     Route: 058
     Dates: start: 20121025
  14. XOLAIR [Suspect]
     Active Substance: OMALIZUMAB
     Route: 058
     Dates: start: 20190508
  15. FLOVENT [Concomitant]
     Active Substance: FLUTICASONE PROPIONATE
     Indication: ASTHMA
     Dosage: 2 DF, BID
     Route: 048

REACTIONS (49)
  - Regurgitation [Unknown]
  - Pain [Unknown]
  - Bronchospasm [Unknown]
  - Cough [Recovering/Resolving]
  - Cytogenetic abnormality [Unknown]
  - Myalgia [Unknown]
  - Hypophagia [Unknown]
  - Malaise [Unknown]
  - Rales [Unknown]
  - Mobility decreased [Unknown]
  - Bronchitis [Unknown]
  - Ill-defined disorder [Unknown]
  - White blood cell count increased [Unknown]
  - Aspiration [Unknown]
  - Vomiting [Recovered/Resolved]
  - Heart rate increased [Unknown]
  - Microcytic anaemia [Unknown]
  - Fatigue [Unknown]
  - Dizziness [Unknown]
  - Nausea [Recovered/Resolved]
  - Blood pressure systolic increased [Unknown]
  - Respiratory alkalosis [Unknown]
  - Viral infection [Unknown]
  - Hyperglycaemia [Unknown]
  - Peak expiratory flow rate increased [Unknown]
  - Dyspnoea [Recovering/Resolving]
  - Rhinorrhoea [Unknown]
  - Lacrimation increased [Unknown]
  - Infection [Unknown]
  - Smoke sensitivity [Unknown]
  - Seasonal allergy [Unknown]
  - Lower respiratory tract infection [Unknown]
  - Sleep apnoea syndrome [Not Recovered/Not Resolved]
  - Drug hypersensitivity [Unknown]
  - Dyspnoea exertional [Unknown]
  - Respiratory disorder [Unknown]
  - Wheezing [Unknown]
  - Atopy [Unknown]
  - Lactic acidosis [Recovered/Resolved]
  - Gastrooesophageal reflux disease [Not Recovered/Not Resolved]
  - Asthma [Recovered/Resolved]
  - Dysphagia [Unknown]
  - Odynophagia [Unknown]
  - Oesophageal motility disorder [Not Recovered/Not Resolved]
  - Obstructive airways disorder [Unknown]
  - Chest discomfort [Unknown]
  - Blood lactic acid increased [Unknown]
  - Spinal compression fracture [Unknown]
  - Chills [Unknown]

NARRATIVE: CASE EVENT DATE: 20181009
